FAERS Safety Report 11500748 (Version 1)
Quarter: 2015Q3

REPORT INFORMATION
  Report Type: Spontaneous
  Country: US (occurrence: US)
  Receive Date: 20150903
  Receipt Date: 20150903
  Transmission Date: 20151125
  Serious: No
  Sender: FDA-Public Use
  Company Number: US-ELI_LILLY_AND_COMPANY-US200812000944

PATIENT
  Sex: Female

DRUGS (3)
  1. HUMALOG MIX75/25 [Suspect]
     Active Substance: INSULIN LISPRO
     Dates: start: 200808
  2. BYETTA [Concomitant]
     Active Substance: EXENATIDE
  3. LEVEMIR [Concomitant]
     Active Substance: INSULIN DETEMIR

REACTIONS (7)
  - Musculoskeletal stiffness [Unknown]
  - Epistaxis [Unknown]
  - Fear [Unknown]
  - Arthritis [Unknown]
  - Paraesthesia [Unknown]
  - Pain in extremity [Unknown]
  - Injection site bruising [Unknown]
